FAERS Safety Report 8825978 (Version 1)
Quarter: 2012Q4

REPORT INFORMATION
  Report Type: 
  Country: US (occurrence: US)
  Receive Date: 20121005
  Receipt Date: 20121005
  Transmission Date: 20130627
  Serious: Yes (Death)
  Sender: FDA-Public Use
  Company Number: US-ROCHE-1133645

PATIENT
  Sex: Male

DRUGS (9)
  1. RITUXAN [Suspect]
     Indication: LYMPHOMA
     Route: 065
     Dates: start: 19980226
  2. RITUXAN [Suspect]
     Indication: OFF LABEL USE
     Route: 065
     Dates: start: 19980305
  3. RITUXAN [Suspect]
     Route: 065
     Dates: start: 19980311
  4. RITUXAN [Suspect]
     Route: 065
     Dates: start: 19980318
  5. RITUXAN [Suspect]
     Route: 065
     Dates: start: 19980325
  6. RITUXAN [Suspect]
     Route: 065
     Dates: start: 19980403
  7. RITUXAN [Suspect]
     Route: 065
     Dates: start: 19980410
  8. RITUXAN [Suspect]
     Route: 065
     Dates: start: 19980424
  9. RITUXAN [Suspect]
     Route: 065
     Dates: start: 19980501

REACTIONS (2)
  - Death [Fatal]
  - Malaise [Unknown]
